FAERS Safety Report 5038427-X (Version None)
Quarter: 2006Q2

REPORT INFORMATION
  Report Type: 
  Country: None (occurrence: None)
  Receive Date: 20060601
  Receipt Date: 20060313
  Transmission Date: 20061013
  Serious: No
  Sender: FDA-Public Use
  Company Number: 2006PV010166

PATIENT
  Age: 68 Year
  Sex: Male
  Weight: 101.6057 kg

DRUGS (6)
  1. BYETTA [Suspect]
     Indication: DIABETES MELLITUS NON-INSULIN-DEPENDENT
     Dosage: 5 MCG;BID;SC
     Route: 058
     Dates: start: 20060302
  2. COREG [Suspect]
     Indication: DRUG USE FOR UNKNOWN INDICATION
     Dosage: 6.25 MG;BID;PO
     Route: 048
  3. GLYBURIDE [Concomitant]
  4. METFORMIN [Concomitant]
  5. ACARBOSE [Concomitant]
  6. COLACE [Concomitant]

REACTIONS (1)
  - CONSTIPATION [None]
